FAERS Safety Report 15095084 (Version 9)
Quarter: 2018Q4

REPORT INFORMATION
  Report Type: Report from Study
  Country: US (occurrence: US)
  Receive Date: 20180702
  Receipt Date: 20181130
  Transmission Date: 20190204
  Serious: Yes (Life-Threatening, Hospitalization, Other)
  Sender: FDA-Public Use
  Company Number: US-AMGEN-USASP2018089712

PATIENT
  Age: 44 Year
  Sex: Female

DRUGS (3)
  1. AIMOVIG [Suspect]
     Active Substance: ERENUMAB-AOOE
     Indication: MIGRAINE
     Dosage: 70 MG, QMO
     Route: 058
     Dates: start: 20180614
  2. KETAMINE [Concomitant]
     Active Substance: KETAMINE
     Indication: MIGRAINE
     Dosage: UNK
  3. CAFFEINE. [Concomitant]
     Active Substance: CAFFEINE
     Indication: MIGRAINE
     Dosage: UNK

REACTIONS (6)
  - Diplopia [Unknown]
  - Loss of consciousness [Unknown]
  - Spinal cord abscess [Not Recovered/Not Resolved]
  - Headache [Recovering/Resolving]
  - Hypoaesthesia [Unknown]
  - Fall [Unknown]

NARRATIVE: CASE EVENT DATE: 2018
